FAERS Safety Report 4355759-9 (Version None)
Quarter: 2004Q2

REPORT INFORMATION
  Report Type: 
  Country: None (occurrence: None)
  Receive Date: 20040505
  Receipt Date: 20031112
  Transmission Date: 20050107
  Serious: Yes (Disabling, Other)
  Sender: FDA-Public Use
  Company Number: 2003-11-0678

PATIENT
  Age: 48 Year
  Sex: Male

DRUGS (2)
  1. REBETOL [Suspect]
     Indication: HEPATITIS C
     Dosage: ORAL
     Route: 048
     Dates: end: 20030420
  2. VIRAFERON (INTERFERON ALFA-2B) [Suspect]
     Indication: HEPATITIS C
     Dosage: SUBCUTANEOUS
     Route: 058
     Dates: end: 20030420

REACTIONS (4)
  - IATROGENIC INJURY [None]
  - OPTIC NEURITIS [None]
  - PAPILLOEDEMA [None]
  - VISION BLURRED [None]
